FAERS Safety Report 11643702 (Version 1)
Quarter: 2015Q4

REPORT INFORMATION
  Report Type: Not Available
  Country: ES (occurrence: ES)
  Receive Date: 20151020
  Receipt Date: 20151020
  Transmission Date: 20160304
  Serious: Yes (Other)
  Sender: FDA-Public Use
  Company Number: ES-MUNDIPHARMA DS AND PHARMACOVIGILANCE-GBR-2015-0031347

PATIENT
  Age: 70 Year
  Sex: Male

DRUGS (6)
  1. ADIRO [Concomitant]
     Active Substance: ASPIRIN
     Dosage: UNK
     Route: 048
     Dates: start: 2015
  2. CAFINITRINA [Concomitant]
     Dosage: UNK
     Route: 048
     Dates: start: 200812
  3. TARGIN 5MG/2.5MG COMPRIMIDOS DE LIBERACION PROLONGADA [Suspect]
     Active Substance: NALOXONE HYDROCHLORIDE\OXYCODONE HYDROCHLORIDE
     Indication: PRODUCT USED FOR UNKNOWN INDICATION
     Dosage: 5 MG, Q12H
     Route: 048
     Dates: start: 20141119, end: 20150901
  4. ATENOLOL CINFA [Concomitant]
     Dosage: UNK
     Route: 048
     Dates: start: 2008
  5. BENICAR [Concomitant]
     Active Substance: OLMESARTAN MEDOXOMIL
     Dosage: UNK
     Dates: start: 2010
  6. VYTORIN [Concomitant]
     Active Substance: EZETIMIBE\SIMVASTATIN
     Dosage: UNK
     Dates: start: 2015

REACTIONS (1)
  - Cognitive disorder [Recovering/Resolving]

NARRATIVE: CASE EVENT DATE: 20150901
